FAERS Safety Report 20130823 (Version 1)
Quarter: 2021Q4

REPORT INFORMATION
  Report Type: Spontaneous
  Country: US (occurrence: US)
  Receive Date: 20211130
  Receipt Date: 20211130
  Transmission Date: 20220303
  Serious: No
  Sender: FDA-Public Use
  Company Number: US-PERRIGO-21US002046

PATIENT
  Age: 53 Year
  Sex: Male
  Weight: 86.168 kg

DRUGS (2)
  1. NICOTINE POLACRILEX [Suspect]
     Active Substance: NICOTINE
     Indication: Smoking cessation therapy
     Dosage: 4 MG, PRN
     Route: 060
     Dates: start: 20200323, end: 20200407
  2. NICOTINE POLACRILEX [Suspect]
     Active Substance: NICOTINE
     Dosage: 4 MG, PRN
     Route: 060
     Dates: start: 20210101, end: 20210101

REACTIONS (4)
  - Oral discomfort [Recovered/Resolved]
  - Nausea [Recovered/Resolved]
  - Incorrect route of product administration [Recovered/Resolved]
  - Expired product administered [Recovered/Resolved]

NARRATIVE: CASE EVENT DATE: 20200323
